FAERS Safety Report 5941105-3 (Version None)
Quarter: 2008Q4

REPORT INFORMATION
  Report Type: 
  Country: None (occurrence: None)
  Receive Date: 20081031
  Receipt Date: 20081029
  Transmission Date: 20090506
  Serious: Yes (Hospitalization)
  Sender: FDA-Public Use
  Company Number: 1000001007

PATIENT
  Age: 82 Year
  Sex: Male

DRUGS (11)
  1. ESCITALOPRAM [Suspect]
     Dosage: ORAL
     Route: 048
     Dates: end: 20080323
  2. SINTROM [Suspect]
     Indication: ATRIAL FIBRILLATION
     Dosage: (4 MG), ORAL
     Route: 048
     Dates: start: 20080201, end: 20080523
  3. LIPANTHYL [Suspect]
     Indication: ATRIAL FIBRILLATION
     Dosage: ORAL
     Route: 048
     Dates: end: 20080323
  4. PLAVIX [Concomitant]
  5. GLUCOPHAGE [Concomitant]
  6. OMEPRAZOLE [Concomitant]
  7. COVERSYL [Concomitant]
  8. LASIX [Concomitant]
  9. CHONDROSULF [Concomitant]
  10. OMIX [Concomitant]
  11. IXPRIM [Concomitant]

REACTIONS (6)
  - DEMENTIA [None]
  - DRUG INTERACTION [None]
  - HAEMOGLOBIN DECREASED [None]
  - HAEMOPTYSIS [None]
  - HYPOTENSION [None]
  - INTERNATIONAL NORMALISED RATIO INCREASED [None]
